FAERS Safety Report 11070728 (Version 2)
Quarter: 2015Q2

REPORT INFORMATION
  Report Type: Spontaneous
  Country: IT (occurrence: IT)
  Receive Date: 20150427
  Receipt Date: 20150512
  Transmission Date: 20150821
  Serious: Yes (Hospitalization)
  Sender: FDA-Public Use
  Company Number: IT-BAUSCH-BL-2015-012033

PATIENT
  Age: 9 Year
  Sex: Male

DRUGS (11)
  1. IBUPROFEN. [Interacting]
     Active Substance: IBUPROFEN
     Indication: INFLUENZA
  2. METOCLOPRAMIDE. [Interacting]
     Active Substance: METOCLOPRAMIDE
     Indication: INFLUENZA
     Route: 065
  3. DOMPERIDONE [Interacting]
     Active Substance: DOMPERIDONE
     Indication: INFLUENZA
     Route: 065
  4. RISPERDAL [Interacting]
     Active Substance: RISPERIDONE
     Indication: ABNORMAL BEHAVIOUR
     Route: 048
     Dates: start: 20140928, end: 20150110
  5. RISPERDAL [Interacting]
     Active Substance: RISPERIDONE
     Indication: TIC
  6. IBUPROFEN. [Interacting]
     Active Substance: IBUPROFEN
     Indication: INFLUENZA
     Route: 065
  7. METOCLOPRAMIDE. [Interacting]
     Active Substance: METOCLOPRAMIDE
     Indication: INFLUENZA
  8. BUTAMIRATE CITRATE [Interacting]
     Active Substance: BUTAMIRATE CITRATE
     Indication: INFLUENZA
     Route: 065
  9. DEXAMETHASONE. [Suspect]
     Active Substance: DEXAMETHASONE
     Indication: INFLUENZA
     Route: 065
  10. PARACETAMOL [Interacting]
     Active Substance: ACETAMINOPHEN
     Indication: INFLUENZA
     Route: 065
  11. PARACETAMOL [Interacting]
     Active Substance: ACETAMINOPHEN
     Indication: INFLUENZA

REACTIONS (1)
  - Sinus bradycardia [Recovered/Resolved]

NARRATIVE: CASE EVENT DATE: 20150118
